FAERS Safety Report 8491844-8 (Version None)
Quarter: 2012Q3

REPORT INFORMATION
  Report Type: 
  Country: None (occurrence: None)
  Receive Date: 20120706
  Receipt Date: 20110706
  Transmission Date: 20120928
  Serious: No
  Sender: FDA-Public Use
  Company Number: US-GLAXOSMITHKLINE-A0935154A

PATIENT
  Sex: Male

DRUGS (1)
  1. FLOVENT [Suspect]
     Indication: OESOPHAGITIS
     Dosage: 2SPR TWICE PER DAY
     Route: 055
     Dates: start: 20110608, end: 20110629

REACTIONS (1)
  - OROPHARYNGEAL PAIN [None]
